FAERS Safety Report 7795382-7 (Version None)
Quarter: 2011Q4

REPORT INFORMATION
  Report Type: 
  Country: None (occurrence: None)
  Receive Date: 20111004
  Receipt Date: 20110921
  Transmission Date: 20120403
  Serious: Yes (Death, Hospitalization)
  Sender: FDA-Public Use
  Company Number: US-OPTIMER-20110030

PATIENT

DRUGS (9)
  1. HEPARIN [Concomitant]
     Indication: PROPHYLAXIS
     Dosage: 5000 IU, TID
     Route: 058
  2. PREDNISONE [Concomitant]
     Indication: CHRONIC OBSTRUCTIVE PULMONARY DISEASE
     Dosage: 20 MG, QD
     Route: 048
  3. ASPIRIN [Concomitant]
     Indication: PROPHYLAXIS
     Dosage: 325 MG, QD
     Route: 048
  4. VANCOMYCIN [Concomitant]
     Indication: CLOSTRIDIUM DIFFICILE COLITIS
     Dosage: 500 MG, QID
     Route: 048
     Dates: start: 20110901
  5. VANCOMYCIN [Concomitant]
     Dosage: 1 G, BID
     Route: 042
     Dates: start: 20110901
  6. VANCOMYCIN [Concomitant]
     Dosage: 500 MG, TID
     Route: 054
     Dates: start: 20110901
  7. TYLENOL-500 [Concomitant]
     Indication: PYREXIA
     Dosage: 650 MG, PRN
     Route: 048
  8. DIFICID [Suspect]
     Indication: CLOSTRIDIUM DIFFICILE COLITIS
     Dosage: 200 MG, BID
     Route: 048
     Dates: start: 20110919
  9. SERTRALINE HYDROCHLORIDE [Concomitant]
     Indication: DEPRESSION
     Dosage: 100 MG, QD
     Route: 048

REACTIONS (10)
  - ACIDOSIS [None]
  - ANURIA [None]
  - VENTRICULAR FIBRILLATION [None]
  - PYREXIA [None]
  - VENTRICULAR TACHYCARDIA [None]
  - PULSELESS ELECTRICAL ACTIVITY [None]
  - BLOOD LACTIC ACID INCREASED [None]
  - SHOCK [None]
  - WHITE BLOOD CELL COUNT INCREASED [None]
  - STAPHYLOCOCCUS TEST POSITIVE [None]
